FAERS Safety Report 4439236-2 (Version None)
Quarter: 2004Q3

REPORT INFORMATION
  Report Type: 
  Country: None (occurrence: None)
  Receive Date: 20040831
  Receipt Date: 20040816
  Transmission Date: 20050211
  Serious: No
  Sender: FDA-Public Use
  Company Number: 04H-163-0271268-00

PATIENT

DRUGS (2)
  1. AMINOSYN 10% [Suspect]
     Indication: PARENTERAL NUTRITION
     Dosage: 2 ML/KG/HR (10%), OVER 96 HRS. EVERY 3 WKS, INTRAVENOUS; 6 HRS. BEFORE ACIVICIN INFUS. - 18 HRS AFTE
     Route: 042
  2. ACIVICIN [Suspect]
     Indication: CARCINOMA
     Dosage: 50 MG/M2/DAY,  OVER 72 HRS. EVERY 3 WEEKS, INTRAVENOUS

REACTIONS (6)
  - BONE MARROW DEPRESSION [None]
  - DRUG TOXICITY [None]
  - NEUROTOXICITY [None]
  - NEUTROPENIA [None]
  - PYREXIA [None]
  - THROMBOCYTOPENIA [None]
